FAERS Safety Report 22236847 (Version 1)
Quarter: 2023Q2

REPORT INFORMATION
  Report Type: Spontaneous
  Country: BE (occurrence: BE)
  Receive Date: 20230420
  Receipt Date: 20230420
  Transmission Date: 20230722
  Serious: Yes (Other)
  Sender: FDA-Public Use
  Company Number: BE-CELLTRION INC.-2023BE007742

PATIENT

DRUGS (3)
  1. TRASTUZUMAB [Suspect]
     Active Substance: TRASTUZUMAB
     Indication: Breast cancer stage III
     Dosage: EVERY 3 WEEKS, CYCLIC
  2. TRASTUZUMAB [Suspect]
     Active Substance: TRASTUZUMAB
     Indication: HER2 positive breast cancer
     Dosage: UNKNOWN
     Route: 065
  3. PACLITAXEL [Suspect]
     Active Substance: PACLITAXEL
     Indication: HER2 positive breast cancer
     Dosage: UNK

REACTIONS (7)
  - Ulcerative keratitis [Not Recovered/Not Resolved]
  - Herpes ophthalmic [Unknown]
  - Meningoencephalitis herpetic [Unknown]
  - Corneal disorder [Recovering/Resolving]
  - Cell-mediated cytotoxicity [Unknown]
  - Corneal toxicity [Unknown]
  - Intentional dose omission [Unknown]
